FAERS Safety Report 23480515 (Version 2)
Quarter: 2024Q2

REPORT INFORMATION
  Report Type: Report from Study
  Country: US (occurrence: US)
  Receive Date: 20240205
  Receipt Date: 20240401
  Transmission Date: 20240715
  Serious: Yes (Other)
  Sender: FDA-Public Use
  Company Number: US-ABBVIE-5618559

PATIENT
  Age: 66 Year
  Sex: Male

DRUGS (3)
  1. HUMIRA [Suspect]
     Active Substance: ADALIMUMAB
     Indication: Colitis ulcerative
     Route: 058
     Dates: start: 20150616
  2. HUMIRA [Suspect]
     Active Substance: ADALIMUMAB
     Route: 058
  3. LOSARTAN POTASSIUM [Concomitant]
     Active Substance: LOSARTAN POTASSIUM
     Indication: Cardiac disorder
     Dates: start: 20240101

REACTIONS (9)
  - Renal failure [Not Recovered/Not Resolved]
  - Adhesion [Unknown]
  - Depression [Unknown]
  - Extrasystoles [Not Recovered/Not Resolved]
  - Cardiac failure [Not Recovered/Not Resolved]
  - Fear [Unknown]
  - Dizziness [Unknown]
  - Dizziness [Unknown]
  - Confusional state [Unknown]

NARRATIVE: CASE EVENT DATE: 20230901
